FAERS Safety Report 6584149-3 (Version None)
Quarter: 2010Q1

REPORT INFORMATION
  Report Type: 
  Country: None (occurrence: None)
  Receive Date: 20100216
  Receipt Date: 20100210
  Transmission Date: 20100710
  Serious: Yes (Life-Threatening, Hospitalization)
  Sender: FDA-Public Use
  Company Number: FR-JNJFOC-20100205103

PATIENT
  Sex: Female

DRUGS (6)
  1. RISPERDAL [Suspect]
     Indication: PSYCHOTIC DISORDER
     Route: 048
  2. HALDOL [Suspect]
     Indication: PSYCHOTIC DISORDER
     Route: 065
  3. PARKINANE [Suspect]
     Indication: PSYCHOTIC DISORDER
     Route: 065
  4. LEXOMIL [Suspect]
     Indication: PSYCHOTIC DISORDER
     Route: 065
  5. IMOVANE [Suspect]
     Indication: PSYCHOTIC DISORDER
     Route: 065
  6. TERCIAN [Suspect]
     Indication: PSYCHOTIC DISORDER
     Route: 065

REACTIONS (4)
  - COMA [None]
  - CONFUSIONAL STATE [None]
  - EPILEPSY [None]
  - HYPOTHERMIA [None]
